FAERS Safety Report 6552608-5 (Version None)
Quarter: 2010Q1

REPORT INFORMATION
  Report Type: 
  Country: None (occurrence: None)
  Receive Date: 20100126
  Receipt Date: 20100122
  Transmission Date: 20100710
  Serious: Yes (Other)
  Sender: FDA-Public Use
  Company Number: SG-PFIZER INC-2010009298

PATIENT
  Age: 72 Year
  Sex: Female

DRUGS (1)
  1. PHENYTOIN AND PHENYTOIN SODIUM [Suspect]
     Dosage: UNK

REACTIONS (1)
  - ERYTHEMA MULTIFORME [None]
